FAERS Safety Report 6819925-2 (Version None)
Quarter: 2010Q3

REPORT INFORMATION
  Report Type: 
  Country: None (occurrence: None)
  Receive Date: 20100707
  Receipt Date: 20100612
  Transmission Date: 20110219
  Serious: No
  Sender: FDA-Public Use
  Company Number: NL-ROCHE-704597

PATIENT
  Sex: Male

DRUGS (6)
  1. AVASTIN [Suspect]
     Indication: COLON CANCER METASTATIC
     Route: 042
     Dates: start: 20091123, end: 20100423
  2. XELODA [Suspect]
     Indication: COLON CANCER METASTATIC
     Route: 048
     Dates: start: 20091123
  3. XELODA [Suspect]
     Dosage: DOSE STARTED AFTER 6 CYCLES.
     Route: 048
     Dates: end: 20100423
  4. OXALIPLATIN [Concomitant]
     Indication: COLON CANCER METASTATIC
     Route: 042
  5. NEXIUM [Concomitant]
  6. TAMSULOSINE [Concomitant]

REACTIONS (1)
  - DISORIENTATION [None]
